FAERS Safety Report 4546228-1 (Version None)
Quarter: 2005Q1

REPORT INFORMATION
  Report Type: 
  Country: None (occurrence: None)
  Receive Date: 20050103
  Receipt Date: 20041220
  Transmission Date: 20050727
  Serious: Yes (Hospitalization, Other)
  Sender: FDA-Public Use
  Company Number: 2004240090NL

PATIENT
  Age: 57 Year
  Sex: Male
  Weight: 95 kg

DRUGS (2)
  1. SOMAVERT [Suspect]
     Indication: ACROMEGALY
     Dosage: 20 MG (20 MG, 1 IN 1 D), SUBCUTANEOUS
     Route: 058
     Dates: start: 20031212
  2. LANREOTIDE (LANREOTIDE) [Concomitant]

REACTIONS (3)
  - ATHEROSCLEROSIS [None]
  - CHEST PAIN [None]
  - DISEASE PROGRESSION [None]
